FAERS Safety Report 5835624-8 (Version None)
Quarter: 2008Q3

REPORT INFORMATION
  Report Type: 
  Country: None (occurrence: None)
  Receive Date: 20080806
  Receipt Date: 20080804
  Transmission Date: 20090109
  Serious: Yes (Death, Hospitalization)
  Sender: FDA-Public Use
  Company Number: PHEH1999US04427

PATIENT
  Sex: Male
  Weight: 68.3 kg

DRUGS (3)
  1. NEORAL [Suspect]
     Dosage: 375 MG, QD
     Route: 048
     Dates: start: 19990909, end: 19990925
  2. RAD 666 RAD+ [Suspect]
     Indication: HEART TRANSPLANT
     Dosage: 1.5 MG, BID
     Route: 048
     Dates: start: 19990817, end: 19990929
  3. PREDNISONE TAB [Concomitant]

REACTIONS (5)
  - HAEMOPTYSIS [None]
  - PNEUMONIA FUNGAL [None]
  - RENAL FAILURE ACUTE [None]
  - RESPIRATORY DEPRESSION [None]
  - TACHYCARDIA [None]
